FAERS Safety Report 16203249 (Version 2)
Quarter: 2019Q2

REPORT INFORMATION
  Report Type: Report from Study
  Country: AU (occurrence: AU)
  Receive Date: 20190416
  Receipt Date: 20190417
  Transmission Date: 20190711
  Serious: Yes (Hospitalization)
  Sender: FDA-Public Use
  Company Number: AU-EISAI MEDICAL RESEARCH-EC-2018-048437

PATIENT
  Age: 63 Year
  Sex: Male
  Weight: 88.2 kg

DRUGS (35)
  1. CYCLIZINE [Concomitant]
     Active Substance: CYCLIZINE
  2. VITAMIN D3 [Concomitant]
     Active Substance: CHOLECALCIFEROL
  3. LACTULOSE. [Concomitant]
     Active Substance: LACTULOSE
  4. HALOPERIDOL. [Concomitant]
     Active Substance: HALOPERIDOL
  5. METOCLOPRAMIDE. [Concomitant]
     Active Substance: METOCLOPRAMIDE
  6. METHYLNALTREXONE [Concomitant]
     Active Substance: METHYLNALTREXONE
  7. COLECALCIFEROL [Concomitant]
     Active Substance: CHOLECALCIFEROL
  8. GLYCEROL [Concomitant]
     Active Substance: GLYCERIN
  9. PEMBROLIZUMAB. [Suspect]
     Active Substance: PEMBROLIZUMAB
     Indication: RENAL CELL CARCINOMA
     Route: 041
     Dates: start: 20180606
  10. AMITRYPTYLINE [Concomitant]
     Active Substance: AMITRIPTYLINE
  11. ESOMEPRAZOLE. [Concomitant]
     Active Substance: ESOMEPRAZOLE MAGNESIUM
  12. MAXOLON [Concomitant]
     Active Substance: METOCLOPRAMIDE HYDROCHLORIDE
  13. PARACETAMOL [Concomitant]
     Active Substance: ACETAMINOPHEN
  14. MACROGOL 3350 [Concomitant]
     Active Substance: POLYETHYLENE GLYCOL 3350
  15. DENOSUMAB [Concomitant]
     Active Substance: DENOSUMAB
  16. FLEET ENEMA [Concomitant]
     Active Substance: SODIUM PHOSPHATE, DIBASIC\SODIUM PHOSPHATE, MONOBASIC
  17. LACTULOSE. [Concomitant]
     Active Substance: LACTULOSE
  18. BISACODYL. [Concomitant]
     Active Substance: BISACODYL
  19. MICROLAX (SODIUM CITRATE\SODIUM LAURYL SULFOACETATE) [Concomitant]
     Active Substance: SODIUM CITRATE\SODIUM LAURYL SULFOACETATE
  20. HYDROMORPHONE [Suspect]
     Active Substance: HYDROMORPHONE
     Indication: ANALGESIC THERAPY
     Route: 058
     Dates: start: 20181226
  21. DULOXETINE. [Concomitant]
     Active Substance: DULOXETINE
  22. OXYNORM [Concomitant]
     Active Substance: OXYCODONE HYDROCHLORIDE
  23. LENVATINIB [Suspect]
     Active Substance: LENVATINIB
     Indication: RENAL CELL CARCINOMA
     Route: 048
     Dates: start: 20180606, end: 20190410
  24. JURNISTA [Concomitant]
     Active Substance: HYDROMORPHONE HYDROCHLORIDE
  25. PROZOSIN [Concomitant]
  26. DILAUDID [Concomitant]
     Active Substance: HYDROMORPHONE HYDROCHLORIDE
  27. LORAZEPAM. [Concomitant]
     Active Substance: LORAZEPAM
  28. MELATONIN [Concomitant]
     Active Substance: MELATONIN
  29. SENNA [Concomitant]
     Active Substance: SENNA LEAF\SENNOSIDES\SENNOSIDES A AND B
  30. PREGABALIN. [Concomitant]
     Active Substance: PREGABALIN
  31. RAMIPRIL. [Concomitant]
     Active Substance: RAMIPRIL
  32. TEMAZEPAM. [Concomitant]
     Active Substance: TEMAZEPAM
  33. ENOXAPARIN [Concomitant]
     Active Substance: ENOXAPARIN
  34. METHADONE [Concomitant]
     Active Substance: METHADONE HYDROCHLORIDE
  35. COLOXYL +SENNA [Concomitant]

REACTIONS (2)
  - Arthralgia [Unknown]
  - Constipation [Recovering/Resolving]

NARRATIVE: CASE EVENT DATE: 20181124
